FAERS Safety Report 5724939-X (Version None)
Quarter: 2008Q2

REPORT INFORMATION
  Report Type: 
  Country: None (occurrence: None)
  Receive Date: 20080501
  Receipt Date: 20080424
  Transmission Date: 20081010
  Serious: Yes (Hospitalization)
  Sender: FDA-Public Use
  Company Number: ES-AVENTIS-200811881EU

PATIENT
  Age: 60 Year
  Sex: Female

DRUGS (1)
  1. ENOXAPARIN SODIUM [Suspect]
     Route: 058
     Dates: start: 20080419, end: 20080424

REACTIONS (3)
  - ELECTROCARDIOGRAM CHANGE [None]
  - HYPERTENSION [None]
  - TACHYCARDIA [None]
